FAERS Safety Report 6819660-0 (Version None)
Quarter: 2010Q3

REPORT INFORMATION
  Report Type: 
  Country: None (occurrence: None)
  Receive Date: 20100707
  Receipt Date: 20090507
  Transmission Date: 20110219
  Serious: No
  Sender: FDA-Public Use
  Company Number: US-PFIZER INC-2009178475

PATIENT
  Sex: Female
  Weight: 77.1 kg

DRUGS (5)
  1. TIKOSYN [Suspect]
     Indication: ATRIAL FIBRILLATION
     Dosage: 500 UG, 2X/DAY
     Dates: start: 20090223
  2. TIKOSYN [Suspect]
     Indication: ATRIAL FLUTTER
  3. CUMADIN [Concomitant]
     Dosage: UNK
  4. PROPAFENONE [Concomitant]
  5. FLECAINIDE ACETATE [Concomitant]

REACTIONS (1)
  - DRUG EFFECT DECREASED [None]
